FAERS Safety Report 9339355 (Version 1)
Quarter: 2013Q2

REPORT INFORMATION
  Report Type: Spontaneous
  Country: FR (occurrence: FR)
  Receive Date: 20130610
  Receipt Date: 20130610
  Transmission Date: 20140414
  Serious: Yes (Hospitalization)
  Sender: FDA-Public Use
  Company Number: FR-NOVOPROD-379747

PATIENT
  Age: 62 Year
  Sex: Female

DRUGS (10)
  1. VICTOZA [Suspect]
     Indication: PRODUCT USED FOR UNKNOWN INDICATION
     Dosage: 1.2 MG, QD
     Route: 058
     Dates: start: 20130424, end: 20130426
  2. STAGID [Suspect]
     Dosage: 2800 MG, QD
     Route: 048
  3. DUOPLAVIN [Concomitant]
     Dosage: 75/75 (ONE DOSE AT NOON)
  4. SELOKEN                            /00376902/ [Concomitant]
     Dosage: 100 (ONE DOSE IN MORNING)
  5. TRIATEC                            /00116401/ [Concomitant]
     Dosage: 20 MG, QD
  6. TAHOR [Concomitant]
     Dosage: 40 MG, QD
  7. DIAMICRON [Concomitant]
     Dosage: 60 MG, QD
  8. TARDYFERON [Concomitant]
     Dosage: 80 MG, QD
  9. INEXIUM                            /01479302/ [Concomitant]
     Dosage: 40 MG, QD
  10. LYRICA [Concomitant]
     Dosage: 50 MG, BID

REACTIONS (2)
  - Myoclonus [Recovering/Resolving]
  - Hyperthermia [Unknown]
